FAERS Safety Report 9787913 (Version 1)
Quarter: 2013Q4

REPORT INFORMATION
  Report Type: Spontaneous
  Country: US (occurrence: None)
  Receive Date: 20131227
  Receipt Date: 20131227
  Transmission Date: 20140711
  Serious: Yes (Disabling, Other)
  Sender: FDA-Public Use
  Company Number: None

PATIENT
  Age: 31 Year
  Sex: Male
  Weight: 86.18 kg

DRUGS (1)
  1. PROPECIA 1MG MERCK [Suspect]
     Indication: ANDROGENETIC ALOPECIA
     Dosage: 11-12 YEARS   1 PILL  ONCE DAILY

REACTIONS (3)
  - Sperm concentration decreased [None]
  - Libido decreased [None]
  - Vision blurred [None]
